FAERS Safety Report 24916706 (Version 1)
Quarter: 2025Q1

REPORT INFORMATION
  Report Type: Spontaneous
  Country: US (occurrence: None)
  Receive Date: 20250131
  Receipt Date: 20250131
  Transmission Date: 20250409
  Serious: Yes (Other)
  Sender: FDA-CTU
  Company Number: None

PATIENT
  Age: 73 Year
  Sex: Female
  Weight: 69.75 kg

DRUGS (3)
  1. METHENAMINE [Suspect]
     Active Substance: METHENAMINE
     Indication: Urinary tract infection
     Dosage: 90 TABLETS DAILY ORAL
     Route: 048
     Dates: start: 20241109, end: 20250131
  2. Probiotics, [Concomitant]
  3. CHOLESTYRAMINE [Concomitant]
     Active Substance: CHOLESTYRAMINE

REACTIONS (3)
  - Alopecia [None]
  - Alopecia [None]
  - Therapy interrupted [None]

NARRATIVE: CASE EVENT DATE: 20241109
